FAERS Safety Report 15629708 (Version 2)
Quarter: 2018Q4

REPORT INFORMATION
  Report Type: Report from Study
  Country: CA (occurrence: CA)
  Receive Date: 20181117
  Receipt Date: 20181205
  Transmission Date: 20190205
  Serious: Yes (Other)
  Sender: FDA-Public Use
  Company Number: CA-AMGEN-CANSL2016111093

PATIENT
  Age: 83 Year
  Sex: Female
  Weight: 57.6 kg

DRUGS (2)
  1. PROLIA [Suspect]
     Active Substance: DENOSUMAB
     Indication: OSTEOPOROSIS
     Dosage: 60 MG, Q6MO
     Route: 058
     Dates: start: 20150129
  2. CALCIUM [Suspect]
     Active Substance: CALCIUM
     Indication: PRODUCT USED FOR UNKNOWN INDICATION
     Route: 065

REACTIONS (5)
  - Lung neoplasm malignant [Not Recovered/Not Resolved]
  - Muscular weakness [Unknown]
  - Tendon disorder [Unknown]
  - Abdominal discomfort [Unknown]
  - Chronic obstructive pulmonary disease [Unknown]
